FAERS Safety Report 6395965-5 (Version None)
Quarter: 2009Q4

REPORT INFORMATION
  Report Type: 
  Country: None (occurrence: None)
  Receive Date: 20091009
  Receipt Date: 20091005
  Transmission Date: 20100525
  Serious: Yes (Life-Threatening, Other)
  Sender: FDA-Public Use
  Company Number: PHHY2009BR34394

PATIENT
  Age: 75 Year
  Sex: Female

DRUGS (3)
  1. FORASEQ [Suspect]
     Dosage: UNK
     Dates: start: 20060101
  2. FORASEQ [Suspect]
     Dosage: UNK
     Dates: start: 20090101
  3. FORASEQ [Suspect]
     Dosage: UNK

REACTIONS (7)
  - ABDOMINAL DISCOMFORT [None]
  - APPARENT DEATH [None]
  - BRONCHOSPASM [None]
  - DEVICE MALFUNCTION [None]
  - INCORRECT ROUTE OF DRUG ADMINISTRATION [None]
  - INJURY [None]
  - NAUSEA [None]
